FAERS Safety Report 21164458 (Version 1)
Quarter: 2022Q3

REPORT INFORMATION
  Report Type: Spontaneous
  Country: US (occurrence: US)
  Receive Date: 20220803
  Receipt Date: 20220803
  Transmission Date: 20221027
  Serious: Yes (Hospitalization, Other)
  Sender: FDA-Public Use
  Company Number: US-BRISTOL-MYERS SQUIBB COMPANY-2022-082632

PATIENT
  Age: 72 Year
  Sex: Female
  Weight: 115.21 kg

DRUGS (26)
  1. REVLIMID [Suspect]
     Active Substance: LENALIDOMIDE
     Indication: Plasma cell myeloma
     Dosage: DAILY 14D ON/7D OFF
     Route: 048
  2. ALBUTEROL\IPRATROPIUM [Concomitant]
     Active Substance: ALBUTEROL\IPRATROPIUM
  3. AMLODIPINE [Concomitant]
     Active Substance: AMLODIPINE BESYLATE
  4. AZELASTINE [Concomitant]
     Active Substance: AZELASTINE
  5. AZITHROMYCIN [Concomitant]
     Active Substance: AZITHROMYCIN
  6. CALCIUM [Concomitant]
     Active Substance: CALCIUM
  7. TUMS [Concomitant]
     Active Substance: CALCIUM CARBONATE
  8. CELECOXIB [Concomitant]
     Active Substance: CELECOXIB
  9. CLINDAMYCIN [Concomitant]
     Active Substance: CLINDAMYCIN
  10. DEXAMETHASONE [Concomitant]
     Active Substance: DEXAMETHASONE
  11. ZETIA [Concomitant]
     Active Substance: EZETIMIBE
  12. FLUOXETINE [Concomitant]
     Active Substance: FLUOXETINE HYDROCHLORIDE
  13. FLONASE [Concomitant]
     Active Substance: FLUTICASONE PROPIONATE
  14. LANTUS [Concomitant]
     Active Substance: INSULIN GLARGINE
  15. HUMALOG [Concomitant]
     Active Substance: INSULIN LISPRO
  16. LEVOTHYROXINE [Concomitant]
     Active Substance: LEVOTHYROXINE
  17. MELOXICAM [Concomitant]
     Active Substance: MELOXICAM
  18. METFORMIN [Concomitant]
     Active Substance: METFORMIN HYDROCHLORIDE
  19. METOCLOPRAMIDE [Concomitant]
     Active Substance: METOCLOPRAMIDE
  20. MULTIVITAMIN [ASCORBIC ACID;COLECALCIFEROL;DEXPANTHENOL;NICOTINAMIDE;P [Concomitant]
  21. BACTROBAN [Concomitant]
     Active Substance: MUPIROCIN\MUPIROCIN CALCIUM
  22. MYRBETRIQ [Concomitant]
     Active Substance: MIRABEGRON
  23. VITAMIN D3 [Concomitant]
     Active Substance: CHOLECALCIFEROL
  24. ALPRAZOLAM [Concomitant]
     Active Substance: ALPRAZOLAM
  25. TYLENOL [Concomitant]
     Active Substance: ACETAMINOPHEN
  26. DEXTROSE [Concomitant]
     Active Substance: DEXTROSE

REACTIONS (2)
  - Pneumonia [Unknown]
  - Off label use [Unknown]
